FAERS Safety Report 9283482 (Version 1)
Quarter: 2013Q2

REPORT INFORMATION
  Report Type: Spontaneous
  Country: US (occurrence: US)
  Receive Date: 20130510
  Receipt Date: 20130510
  Transmission Date: 20140414
  Serious: No
  Sender: FDA-Public Use
  Company Number: US-GLAXOSMITHKLINE-A1012258A

PATIENT
  Age: 66 Year
  Sex: Female
  Weight: 59.1 kg

DRUGS (15)
  1. TYKERB [Suspect]
     Indication: PRODUCT USED FOR UNKNOWN INDICATION
     Dosage: 1250MG PER DAY
     Route: 048
  2. CRESTOR [Concomitant]
  3. PREVACID [Concomitant]
  4. VITAMIN D [Concomitant]
  5. LEVOTHYROXINE [Concomitant]
  6. COREG [Concomitant]
  7. VITAMIN C [Concomitant]
  8. VITAMIN E [Concomitant]
  9. IMODIUM A-D [Concomitant]
  10. BETA CAROTENE [Concomitant]
  11. FISH OIL [Concomitant]
  12. MILK THISTLE [Concomitant]
  13. PROBIOTIC [Concomitant]
  14. MULTIVITAMIN [Concomitant]
  15. ASPIRIN [Concomitant]

REACTIONS (2)
  - Diarrhoea [Unknown]
  - Pruritus [Unknown]
